FAERS Safety Report 13523696 (Version 1)
Quarter: 2017Q2

REPORT INFORMATION
  Report Type: Spontaneous
  Country: US (occurrence: US)
  Receive Date: 20170508
  Receipt Date: 20170508
  Transmission Date: 20170830
  Serious: No
  Sender: FDA-Public Use
  Company Number: US-VIFOR (INTERNATIONAL) INC.-VIT-2017-01295

PATIENT
  Sex: Female

DRUGS (13)
  1. SALBUTAMOL SULFATE [Concomitant]
     Active Substance: ALBUTEROL SULFATE
  2. FENOFIBRATE. [Concomitant]
     Active Substance: FENOFIBRATE
  3. LANTUS SOLOSTAR [Concomitant]
     Active Substance: INSULIN GLARGINE
  4. NOVOLOG MIX 70/30 [Concomitant]
     Active Substance: INSULIN ASPART
  5. CARVEDILOL. [Concomitant]
     Active Substance: CARVEDILOL
  6. GABAPENTIN. [Concomitant]
     Active Substance: GABAPENTIN
  7. VICTOZA [Concomitant]
     Active Substance: LIRAGLUTIDE
  8. AMITIZA [Concomitant]
     Active Substance: LUBIPROSTONE
  9. LISINOPRIL. [Concomitant]
     Active Substance: LISINOPRIL
  10. SIMVASTATIN. [Concomitant]
     Active Substance: SIMVASTATIN
  11. ZOLPIDEM TARTRATE. [Concomitant]
     Active Substance: ZOLPIDEM TARTRATE
  12. VELTASSA [Suspect]
     Active Substance: PATIROMER
     Indication: HYPERKALAEMIA
     Dates: start: 20170120
  13. OMEPRAZOLE. [Concomitant]
     Active Substance: OMEPRAZOLE

REACTIONS (3)
  - Nausea [Not Recovered/Not Resolved]
  - Product solubility abnormal [Unknown]
  - Abdominal discomfort [Not Recovered/Not Resolved]

NARRATIVE: CASE EVENT DATE: 2017
